FAERS Safety Report 6356839-9 (Version None)
Quarter: 2009Q3

REPORT INFORMATION
  Report Type: 
  Country: None (occurrence: None)
  Receive Date: 20090915
  Receipt Date: 20090907
  Transmission Date: 20100115
  Serious: Yes (Hospitalization)
  Sender: FDA-Public Use
  Company Number: FR-ASTRAZENECA-2009SE11777

PATIENT
  Age: 893 Month
  Sex: Female

DRUGS (10)
  1. INEXIUM [Suspect]
     Route: 048
     Dates: start: 20090511
  2. PLAVIX [Interacting]
     Route: 048
     Dates: start: 20090511, end: 20090530
  3. TAHOR [Interacting]
     Route: 048
     Dates: start: 20090511
  4. SELOKEN [Concomitant]
  5. ASPEGIC 1000 [Concomitant]
  6. COVERSYL [Concomitant]
  7. SEROPLEX [Concomitant]
  8. LEXOMIL [Concomitant]
     Dosage: AS REQUIRED
  9. CORTANCYL [Concomitant]
     Indication: RHEUMATOID ARTHRITIS
  10. SALAZOPYRINE [Concomitant]
     Indication: RHEUMATOID ARTHRITIS

REACTIONS (3)
  - DRUG INEFFECTIVE [None]
  - DRUG INTERACTION [None]
  - THROMBOSIS [None]
